FAERS Safety Report 9376043 (Version 1)
Quarter: 2013Q2

REPORT INFORMATION
  Report Type: Spontaneous
  Country: FR (occurrence: FR)
  Receive Date: 20130630
  Receipt Date: 20130630
  Transmission Date: 20140414
  Serious: Yes (Other)
  Sender: FDA-Public Use
  Company Number: FR-TEVA-412810ISR

PATIENT
  Sex: Female

DRUGS (1)
  1. FUROSEMIDE TEVA 40MG [Suspect]
     Indication: CARDIAC FAILURE
     Dosage: 80 MILLIGRAM DAILY; ON MORNING AND EVENING
     Dates: start: 201306, end: 20130608

REACTIONS (3)
  - Hallucination [Unknown]
  - Somnolence [Unknown]
  - Malaise [Unknown]
